FAERS Safety Report 5714512-1 (Version None)
Quarter: 2008Q2

REPORT INFORMATION
  Report Type: 
  Country: None (occurrence: None)
  Receive Date: 20080423
  Receipt Date: 20080411
  Transmission Date: 20081010
  Serious: Yes (Hospitalization)
  Sender: FDA-Public Use
  Company Number: FR-AVENTIS-200811372FR

PATIENT
  Age: 89 Year
  Sex: Female

DRUGS (12)
  1. ACETAMINOPHEN AND TRAMADOL HCL [Suspect]
     Route: 048
     Dates: start: 20060615, end: 20080326
  2. LASILIX                            /00032601/ [Suspect]
     Route: 048
     Dates: start: 20060616, end: 20080326
  3. BRONCHOKOD [Suspect]
     Indication: UPPER AERODIGESTIVE TRACT INFECTION
     Route: 048
     Dates: start: 20080321, end: 20080328
  4. CARDIOCALM [Suspect]
     Route: 048
     Dates: start: 20060315, end: 20080326
  5. ALDALIX [Suspect]
     Route: 048
     Dates: start: 20060615, end: 20080326
  6. SMECTA                             /01255901/ [Suspect]
     Route: 048
     Dates: start: 20060615, end: 20080326
  7. VIBTIL                             /01652702/ [Suspect]
     Route: 048
     Dates: start: 20070625, end: 20080326
  8. EFFERALGAN                         /00020001/ [Suspect]
     Route: 048
     Dates: start: 20060615, end: 20080326
  9. MOTILIUM [Suspect]
     Route: 048
     Dates: start: 20070322, end: 20080326
  10. AUGMENTIN '125' [Suspect]
     Indication: UPPER AERODIGESTIVE TRACT INFECTION
     Route: 048
     Dates: start: 20080321, end: 20080328
  11. KETUM [Concomitant]
     Route: 003
  12. DULCIPHAK [Concomitant]
     Route: 047

REACTIONS (2)
  - HYPERKALAEMIA [None]
  - HYPOGLYCAEMIA [None]
